FAERS Safety Report 24206728 (Version 3)
Quarter: 2025Q3

REPORT INFORMATION
  Report Type: Spontaneous
  Country: JP (occurrence: JP)
  Receive Date: 20240813
  Receipt Date: 20250715
  Transmission Date: 20251021
  Serious: Yes (Other)
  Sender: JAZZ
  Company Number: JP-JAZZ PHARMACEUTICALS-2024-JP-009316

PATIENT
  Age: 52 Year
  Sex: Male

DRUGS (1)
  1. VYXEOS [Suspect]
     Active Substance: CYTARABINE\DAUNORUBICIN
     Indication: Acute myeloid leukaemia
     Dates: start: 20240603, end: 20240607

REACTIONS (6)
  - Sialoadenitis [Recovering/Resolving]
  - White blood cell count decreased [Unknown]
  - Febrile neutropenia [Recovering/Resolving]
  - Injection site rash [Recovering/Resolving]
  - Stenotrophomonas test positive [Unknown]
  - Infection [Unknown]

NARRATIVE: CASE EVENT DATE: 20240101
